FAERS Safety Report 14861535 (Version 1)
Quarter: 2018Q2

REPORT INFORMATION
  Report Type: Spontaneous
  Country: US (occurrence: US)
  Receive Date: 20180423
  Receipt Date: 20180423
  Transmission Date: 20180711
  Serious: Yes (Other)
  Sender: FDA-Public Use
  Company Number: None

PATIENT
  Age: 70 Year
  Sex: Female

DRUGS (11)
  1. METFORMIN [Suspect]
     Active Substance: METFORMIN HYDROCHLORIDE
     Indication: TYPE 2 DIABETES MELLITUS
     Dosage: ?          QUANTITY:2 TABLET(S);?
     Route: 048
  2. GARLIC. [Concomitant]
     Active Substance: GARLIC
  3. GINGER ROOT [Concomitant]
     Active Substance: GINGER
  4. VITAMIN D [Concomitant]
     Active Substance: CHOLECALCIFEROL
  5. GLIPIZIDE ER [Suspect]
     Active Substance: GLIPIZIDE
     Indication: TYPE 2 DIABETES MELLITUS
     Dosage: ?          QUANTITY:1 TABLET(S);?
     Route: 048
  6. CINNAMON. [Concomitant]
     Active Substance: CINNAMON
  7. ASA [Concomitant]
     Active Substance: ASPIRIN
  8. SIMVASTATIN. [Concomitant]
     Active Substance: SIMVASTATIN
  9. HYDROCHLOROTHIAZIDE. [Concomitant]
     Active Substance: HYDROCHLOROTHIAZIDE
  10. LISINOPRIL. [Concomitant]
     Active Substance: LISINOPRIL
  11. MAGNESIUM CITRATE. [Concomitant]
     Active Substance: MAGNESIUM CITRATE

REACTIONS (4)
  - Blood glucose increased [None]
  - Glycosylated haemoglobin increased [None]
  - Product quality issue [None]
  - Insurance issue [None]

NARRATIVE: CASE EVENT DATE: 20180209
